FAERS Safety Report 4458871-9 (Version None)
Quarter: 2004Q3

REPORT INFORMATION
  Report Type: 
  Country: None (occurrence: None)
  Receive Date: 20040922
  Receipt Date: 20040922
  Transmission Date: 20050211
  Serious: Yes (Hospitalization)
  Sender: FDA-Public Use
  Company Number: None

PATIENT
  Age: 37 Year
  Sex: Male
  Weight: 91.2 kg

DRUGS (4)
  1. LOVENOX [Suspect]
     Indication: DEEP VENOUS THROMBOSIS PROPHYLAXIS
     Dosage: 80 M  SQ
     Dates: start: 20040731, end: 20040806
  2. COUMADIN [Suspect]
     Indication: DEEP VENOUS THROMBOSIS PROPHYLAXIS
     Dosage: 5 MG PO
     Route: 048
     Dates: start: 20040731, end: 20040806
  3. PRILOSEC [Concomitant]
  4. D-N-100 [Concomitant]

REACTIONS (1)
  - HAEMATOCHEZIA [None]
